FAERS Safety Report 7917008-1 (Version None)
Quarter: 2011Q4

REPORT INFORMATION
  Report Type: 
  Country: None (occurrence: None)
  Receive Date: 20111116
  Receipt Date: 20111110
  Transmission Date: 20120403
  Serious: Yes (Death)
  Sender: FDA-Public Use
  Company Number: JP-BAYER-2011-051960

PATIENT
  Age: 90 Year
  Sex: Male
  Weight: 55 kg

DRUGS (8)
  1. CARVEDILOL [Concomitant]
     Dosage: DAILY DOSE 2.5 MG
     Route: 045
     Dates: start: 20110312
  2. SIGMART [Concomitant]
     Dosage: DAILY DOSE 15 MG
     Route: 048
     Dates: start: 20110407
  3. ASPIRIN [Suspect]
     Indication: ACUTE MYOCARDIAL INFARCTION
     Dosage: DAILY DOSE 100 MG
     Route: 045
     Dates: start: 20110412
  4. LANSOPRAZOLE [Concomitant]
     Dosage: DAILY DOSE 15 MG
     Route: 045
     Dates: start: 20110312
  5. ENALAPRIL MALEATE [Concomitant]
     Dosage: DAILY DOSE 1.25 MG
     Route: 045
     Dates: start: 20110312
  6. SINGULAIR [Concomitant]
     Dosage: DAILY DOSE 10 MG
     Route: 048
     Dates: start: 20110412
  7. PLAVIX [Suspect]
     Dosage: DAILY DOSE 75 MG
     Route: 045
     Dates: start: 20110311
  8. PRAVASTATIN SODIUM [Concomitant]
     Dosage: DAILY DOSE 5 MG
     Route: 045
     Dates: start: 20110312

REACTIONS (3)
  - PYREXIA [None]
  - BLOOD PRESSURE DECREASED [None]
  - THROMBOSIS IN DEVICE [None]
